FAERS Safety Report 4541553-2 (Version None)
Quarter: 2004Q4

REPORT INFORMATION
  Report Type: 
  Country: None (occurrence: None)
  Receive Date: 20041227
  Receipt Date: 20041215
  Transmission Date: 20050328
  Serious: Yes (Hospitalization)
  Sender: FDA-Public Use
  Company Number: 2004114264

PATIENT
  Age: 54 Year
  Sex: Male
  Weight: 173 kg

DRUGS (4)
  1. TAHOR (ATORVASTATIN) [Suspect]
     Indication: LIPID METABOLISM DISORDER
     Dosage: ORAL
     Route: 048
     Dates: end: 20041015
  2. ACETAMINOPHEN [Suspect]
     Indication: ILL-DEFINED DISORDER
     Dosage: ORAL
     Route: 048
     Dates: start: 20041015, end: 20041016
  3. ACETYLSALICYLIC ACID SRT [Suspect]
     Indication: LIPID METABOLISM DISORDER
     Dosage: 75 MG, ORAL
     Route: 048
     Dates: start: 20040701, end: 20041015
  4. ALLOPURINOL [Suspect]
     Indication: HYPERURICAEMIA
     Dates: start: 20040701, end: 20041015

REACTIONS (6)
  - GINGIVAL BLEEDING [None]
  - HAEMATOCHEZIA [None]
  - HAEMATOMA [None]
  - PURPURA [None]
  - SCAB [None]
  - THROMBOCYTOPENIA [None]
